FAERS Safety Report 11111035 (Version 1)
Quarter: 2015Q2

REPORT INFORMATION
  Report Type: Spontaneous
  Country: FR (occurrence: FR)
  Receive Date: 20150513
  Receipt Date: 20150513
  Transmission Date: 20150821
  Serious: Yes (Hospitalization)
  Sender: FDA-Public Use
  Company Number: FR-ELI_LILLY_AND_COMPANY-FR201504010370

PATIENT
  Age: 30 Year
  Sex: Female

DRUGS (6)
  1. ALIMTA [Suspect]
     Active Substance: PEMETREXED DISODIUM
     Indication: LUNG CANCER METASTATIC
     Dosage: 1000 MG, CYCLICAL
     Route: 042
  2. CISPLATINE [Concomitant]
     Active Substance: CISPLATIN
     Indication: LUNG CANCER METASTATIC
  3. ALIMTA [Suspect]
     Active Substance: PEMETREXED DISODIUM
     Dosage: 1000 MG, CYCLICAL
     Route: 042
     Dates: start: 20150317
  4. SOLU-MEDROL [Concomitant]
     Active Substance: METHYLPREDNISOLONE SODIUM SUCCINATE
     Indication: PREMEDICATION
     Dosage: 80 MG, UNKNOWN
  5. AVASTIN [Concomitant]
     Active Substance: BEVACIZUMAB
     Indication: LUNG CANCER METASTATIC
  6. ZOPHREN                            /00955301/ [Concomitant]
     Active Substance: ONDANSETRON
     Indication: PREMEDICATION
     Dosage: 8 MG, UNK

REACTIONS (2)
  - Off label use [Unknown]
  - Conjunctival oedema [Recovered/Resolved]

NARRATIVE: CASE EVENT DATE: 20150317
